FAERS Safety Report 8984672 (Version 2)
Quarter: 2013Q1

REPORT INFORMATION
  Report Type: Spontaneous
  Country: US (occurrence: US)
  Receive Date: 20121225
  Receipt Date: 20130102
  Transmission Date: 20140127
  Serious: Yes (Other)
  Sender: FDA-Public Use
  Company Number: US-JNJFOC-20110509351

PATIENT
  Age: 41 Year
  Sex: Male
  Weight: 106.6 kg

DRUGS (5)
  1. LEVAQUIN [Suspect]
     Indication: ASTHMA
     Route: 048
  2. LEVAQUIN [Suspect]
     Indication: PHARYNGITIS
     Route: 048
  3. LEVAQUIN [Suspect]
     Indication: UPPER RESPIRATORY TRACT INFECTION
     Route: 048
  4. PREDNISONE [Suspect]
     Indication: ASTHMA
     Route: 048
  5. ADVAIR [Suspect]
     Indication: PRODUCT USED FOR UNKNOWN INDICATION
     Route: 065

REACTIONS (3)
  - Rotator cuff syndrome [Unknown]
  - Rotator cuff syndrome [Unknown]
  - Tendon rupture [Unknown]
